FAERS Safety Report 14382268 (Version 1)
Quarter: 2018Q1

REPORT INFORMATION
  Report Type: Spontaneous
  Country: IN (occurrence: IN)
  Receive Date: 20180112
  Receipt Date: 20180112
  Transmission Date: 20180509
  Serious: Yes (Hospitalization)
  Sender: FDA-Public Use
  Company Number: IN-GLENMARK PHARMACEUTICALS-2017GMK030670

PATIENT
  Age: 50 Year
  Sex: Male

DRUGS (1)
  1. LINEZOLID. [Suspect]
     Active Substance: LINEZOLID
     Indication: STAPHYLOCOCCAL INFECTION
     Dosage: 100 MG, BID
     Route: 065

REACTIONS (3)
  - Enterococcal infection [Unknown]
  - Skin ulcer [Recovered/Resolved]
  - Drug resistance [Unknown]
